FAERS Safety Report 6110610-1 (Version None)
Quarter: 2009Q1

REPORT INFORMATION
  Report Type: 
  Country: None (occurrence: None)
  Receive Date: 20090310
  Receipt Date: 20090227
  Transmission Date: 20090719
  Serious: Yes (Other)
  Sender: FDA-Public Use
  Company Number: US-JNJCH-2009005904

PATIENT
  Age: 45 Year
  Sex: Female
  Weight: 72.6 kg

DRUGS (2)
  1. BENADRYL [Suspect]
     Indication: PARAESTHESIA
     Dosage: TEXT:2 KAPSEALS EVERY 4-6 HOURS
     Route: 048
     Dates: start: 20090219, end: 20090226
  2. OMEPRAZOLE [Concomitant]
     Indication: DYSPEPSIA
     Dosage: TEXT:20 MG AS NEEDED
     Route: 065

REACTIONS (3)
  - ANGIOEDEMA [None]
  - HYPERSENSITIVITY [None]
  - URTICARIA [None]
